FAERS Safety Report 8812357 (Version 1)
Quarter: 2012Q4

REPORT INFORMATION
  Report Type: 
  Country: US (occurrence: US)
  Receive Date: 20120927
  Receipt Date: 20120927
  Transmission Date: 20130627
  Serious: Yes (Other)
  Sender: FDA-Public Use
  Company Number: US-JNJFOC-20120908730

PATIENT
  Age: 56 Year
  Sex: Male

DRUGS (2)
  1. XARELTO [Suspect]
     Indication: KNEE ARTHROPLASTY
     Dosage: (time between surgery and rivaroxaban initiation was reported as unknown)
     Route: 048
     Dates: start: 20120713
  2. XARELTO [Suspect]
     Indication: THROMBOSIS PROPHYLAXIS
     Dosage: (time between surgery and rivaroxaban initiation was reported as unknown)
     Route: 048
     Dates: start: 20120713

REACTIONS (1)
  - Deep vein thrombosis [Unknown]
